FAERS Safety Report 4301329-8 (Version None)
Quarter: 2004Q1

REPORT INFORMATION
  Report Type: 
  Country: None (occurrence: None)
  Receive Date: 20040223
  Receipt Date: 20030218
  Transmission Date: 20041129
  Serious: No
  Sender: FDA-Public Use
  Company Number: US-GLAXOSMITHKLINE-A0397215A

PATIENT

DRUGS (1)
  1. NAVELBINE [Suspect]
     Route: 042

REACTIONS (1)
  - PYREXIA [None]
